FAERS Safety Report 24362609 (Version 1)
Quarter: 2024Q3

REPORT INFORMATION
  Report Type: Spontaneous
  Country: US (occurrence: US)
  Receive Date: 20240925
  Receipt Date: 20240925
  Transmission Date: 20241017
  Serious: No
  Sender: AMGEN
  Company Number: US-AMGEN-USASP2024187041

PATIENT
  Age: 16 Year
  Sex: Male

DRUGS (10)
  1. RITUXIMAB [Suspect]
     Active Substance: RITUXIMAB
     Indication: Epstein-Barr virus infection
     Dosage: 750 MILLIGRAM/SQ. METER
     Route: 065
  2. RITUXIMAB [Suspect]
     Active Substance: RITUXIMAB
     Indication: Meningoencephalitis viral
  3. DECADRON [Concomitant]
     Active Substance: DEXAMETHASONE
     Indication: Epstein-Barr virus test
     Dosage: 15 MILLIGRAM, Q6H (FOR 5 DAYS)
  4. DECADRON [Concomitant]
     Active Substance: DEXAMETHASONE
     Indication: Encephalitis brain stem
  5. HUMAN IMMUNOGLOBULIN G [Concomitant]
     Active Substance: HUMAN IMMUNOGLOBULIN G
     Indication: Epstein-Barr virus test
     Dosage: 2 GRAM PER KILOGRAM (OVER 2 DAYS)
     Route: 042
  6. HUMAN IMMUNOGLOBULIN G [Concomitant]
     Active Substance: HUMAN IMMUNOGLOBULIN G
     Indication: Encephalitis brain stem
  7. GANCICLOVIR [Concomitant]
     Active Substance: GANCICLOVIR
     Indication: Epstein-Barr virus test
  8. GANCICLOVIR [Concomitant]
     Active Substance: GANCICLOVIR
     Indication: Encephalitis brain stem
  9. PREDNISOLONE [Concomitant]
     Active Substance: PREDNISOLONE
     Indication: Encephalitis brain stem
     Dosage: UNK, TAPER OF
  10. PREDNISOLONE [Concomitant]
     Active Substance: PREDNISOLONE
     Indication: Epstein-Barr virus test

REACTIONS (2)
  - Drug effective for unapproved indication [Unknown]
  - Off label use [Unknown]
